FAERS Safety Report 5214471-4 (Version None)
Quarter: 2006Q4

REPORT INFORMATION
  Report Type: 
  Country: None (occurrence: None)
  Receive Date: 20061107
  Receipt Date: 20060913
  Transmission Date: 20070319
  Serious: No
  Sender: FDA-Public Use
  Company Number: 200614833BWH

PATIENT
  Age: 59 Year
  Sex: Male

DRUGS (11)
  1. LEVITRA [Suspect]
     Indication: ERECTILE DYSFUNCTION
     Dosage: 30 MG, ONCE, ORAL; 20MG, ONCE, ORAL
     Route: 048
     Dates: start: 20060101
  2. LEVITRA [Suspect]
     Indication: ERECTILE DYSFUNCTION
     Dosage: 30 MG, ONCE, ORAL; 20MG, ONCE, ORAL
     Route: 048
     Dates: start: 20060601
  3. LEVITRA [Suspect]
     Indication: ERECTILE DYSFUNCTION
     Dosage: 30 MG, ONCE, ORAL; 20MG, ONCE, ORAL
     Route: 048
     Dates: start: 20060721
  4. MIRAPEX [Concomitant]
  5. EFFEXOR [Concomitant]
  6. HYZAAR [Concomitant]
  7. CALCIUM [Concomitant]
  8. ONE-A-DAY [MINERALS NOS, VITAMINS NOS] [Concomitant]
  9. POTASSIUM ACETATE [Concomitant]
  10. DILTIAZEM [Concomitant]
  11. VITAMIN B COMPLEX CAP [Concomitant]

REACTIONS (1)
  - ERECTILE DYSFUNCTION [None]
